FAERS Safety Report 9925561 (Version 2)
Quarter: 2014Q1

REPORT INFORMATION
  Report Type: Spontaneous
  Country: JP (occurrence: JP)
  Receive Date: 20140226
  Receipt Date: 20140226
  Transmission Date: 20141002
  Serious: Yes (Hospitalization)
  Sender: FDA-Public Use
  Company Number: JP-BAYER-2014-023718

PATIENT
  Age: 88 Year
  Sex: Male

DRUGS (2)
  1. ACETYLSALICYLIC ACID({=100 MG) [Suspect]
     Indication: ESSENTIAL THROMBOCYTHAEMIA
     Dosage: UNK
     Route: 048
  2. HYDROXYUREA [Concomitant]
     Indication: ESSENTIAL THROMBOCYTHAEMIA
     Dosage: 500 MG, DAILY DOSE
     Route: 048

REACTIONS (4)
  - Diverticulum intestinal haemorrhagic [None]
  - Haematochezia [None]
  - Diverticulitis [None]
  - Abdominal tenderness [None]
